FAERS Safety Report 10646110 (Version 1)
Quarter: 2014Q4

REPORT INFORMATION
  Report Type: Spontaneous
  Country: US (occurrence: None)
  Receive Date: 20141205
  Receipt Date: 20141205
  Transmission Date: 20150529
  Serious: No
  Sender: FDA-Public Use
  Company Number: USA-2014100911

PATIENT
  Age: 78 Year
  Sex: Female
  Weight: 54.4 kg

DRUGS (14)
  1. ZANTAC [Concomitant]
     Active Substance: RANITIDINE HYDROCHLORIDE
  2. RESTASIS (CICLOSPORIN) [Concomitant]
  3. FUROSEMIDE (FUROSEMIDE) [Concomitant]
     Active Substance: FUROSEMIDE
  4. ASPIRIN (ACETYLSALICYLIC ACID) [Concomitant]
     Active Substance: ASPIRIN
  5. IMODIUM A-D (LOPERAMIDE HYDROCHLORIDE) [Concomitant]
  6. VITAMIN D3 [Concomitant]
     Active Substance: CHOLECALCIFEROL
  7. FISH OIL (FISH OIL) [Concomitant]
     Active Substance: FISH OIL
  8. XANAX [Concomitant]
     Active Substance: ALPRAZOLAM
  9. CO Q-10 (UBIDECARENONE) [Concomitant]
  10. CALCIUM + VITAMIN D (CALCIUM CARBONATE, VITAMIN D NOS) [Concomitant]
  11. POMALYST [Suspect]
     Active Substance: POMALIDOMIDE
     Indication: PLASMA CELL MYELOMA
     Dosage: 3 MG. 21 IN 28 D, PO
     Route: 048
     Dates: start: 20140729
  12. VITAMIN B12 [Concomitant]
     Active Substance: CYANOCOBALAMIN
  13. VITAMIN E (VITAMIN E NOS) [Concomitant]
  14. ACYCLOVIR (ACICLOVIR) [Concomitant]

REACTIONS (3)
  - Feeling abnormal [None]
  - Drug ineffective [None]
  - Back pain [None]

NARRATIVE: CASE EVENT DATE: 2014
